FAERS Safety Report 7313045-9 (Version None)
Quarter: 2011Q1

REPORT INFORMATION
  Report Type: 
  Country: None (occurrence: None)
  Receive Date: 20110225
  Receipt Date: 20110215
  Transmission Date: 20110831
  Serious: Yes (Death, Hospitalization)
  Sender: FDA-Public Use
  Company Number: US-BIOGENIDEC-2011BI002342

PATIENT
  Age: 48 Year
  Sex: Female

DRUGS (2)
  1. AVONEX [Suspect]
     Indication: MULTIPLE SCLEROSIS
     Route: 030
     Dates: start: 20061228
  2. AVONEX [Suspect]
     Route: 030
     Dates: start: 20050909

REACTIONS (5)
  - LUNG ADENOCARCINOMA METASTATIC [None]
  - PNEUMONIA [None]
  - PULMONARY HYPERTENSION [None]
  - ARTHRALGIA [None]
  - CARDIAC FAILURE CONGESTIVE [None]
